FAERS Safety Report 24055813 (Version 1)
Quarter: 2024Q3

REPORT INFORMATION
  Report Type: Spontaneous
  Country: CA (occurrence: None)
  Receive Date: 20240703
  Receipt Date: 20240703
  Transmission Date: 20241016
  Serious: Yes (Life-Threatening, Other)
  Sender: Public
  Company Number: None

PATIENT
  Age: 42 Year
  Sex: Male
  Weight: 74.25 kg

DRUGS (1)
  1. DAYVIGO [Suspect]
     Active Substance: LEMBOREXANT

REACTIONS (12)
  - Anxiety [None]
  - Nausea [None]
  - Vomiting [None]
  - Pharyngitis streptococcal [None]
  - Pyrexia [None]
  - Syncope [None]
  - Jaw fracture [None]
  - Tooth fracture [None]
  - Craniofacial fracture [None]
  - Contusion [None]
  - Contusion [None]
  - Contusion [None]

NARRATIVE: CASE EVENT DATE: 20240628
